FAERS Safety Report 12789152 (Version 3)
Quarter: 2016Q4

REPORT INFORMATION
  Report Type: Spontaneous
  Country: LB (occurrence: LB)
  Receive Date: 20160928
  Receipt Date: 20161025
  Transmission Date: 20170207
  Serious: Yes (Other)
  Sender: FDA-Public Use
  Company Number: LB-ROCHE-1835540

PATIENT
  Sex: Female

DRUGS (6)
  1. SPIRIVA [Concomitant]
     Active Substance: TIOTROPIUM BROMIDE MONOHYDRATE
     Indication: ASTHMA
     Dosage: UNK, QD (2 PUFFS)
     Route: 055
     Dates: start: 2012
  2. VENTOLINE [Concomitant]
     Active Substance: ALBUTEROL
     Indication: ASTHMA
     Dosage: UNK, QD (2 PUFFS)
     Route: 055
     Dates: start: 2003
  3. TRITACE [Concomitant]
     Active Substance: RAMIPRIL
     Indication: HYPERTENSION
     Dosage: 1 DF, BID
     Route: 048
     Dates: start: 2012
  4. LANZOR [Concomitant]
     Active Substance: LANSOPRAZOLE
     Indication: GASTROOESOPHAGEAL REFLUX DISEASE
     Dosage: 1 DF, QD
     Route: 048
     Dates: start: 2012
  5. SYMBICORT [Concomitant]
     Active Substance: BUDESONIDE\FORMOTEROL FUMARATE DIHYDRATE
     Indication: ASTHMA
     Dosage: UNK, BID (2 PUFFS)
     Route: 055
     Dates: start: 2012
  6. XOLAIR [Suspect]
     Active Substance: OMALIZUMAB
     Indication: ASTHMA
     Dosage: 300 MG, QMO
     Route: 058
     Dates: start: 20160729

REACTIONS (8)
  - Chest pain [Unknown]
  - Dyspnoea [Unknown]
  - Feeling abnormal [Unknown]
  - Chest discomfort [Unknown]
  - Angina pectoris [Unknown]
  - Discomfort [Unknown]
  - ECG signs of myocardial ischaemia [Unknown]
  - Hypertension [Unknown]
